FAERS Safety Report 20257072 (Version 1)
Quarter: 2021Q4

REPORT INFORMATION
  Report Type: Spontaneous
  Country: US (occurrence: US)
  Receive Date: 20211230
  Receipt Date: 20211230
  Transmission Date: 20220303
  Serious: No
  Sender: FDA-Public Use
  Company Number: US-PFIZER INC-2021530412

PATIENT
  Age: 70 Year
  Sex: Female
  Weight: 86.18 kg

DRUGS (1)
  1. INLYTA [Suspect]
     Active Substance: AXITINIB
     Indication: Renal cell carcinoma
     Dosage: 5 MG, 2X/DAY
     Route: 048
     Dates: start: 20201014, end: 20210414

REACTIONS (5)
  - Blister [Recovering/Resolving]
  - Skin warm [Unknown]
  - Skin exfoliation [Unknown]
  - Pain of skin [Unknown]
  - Movement disorder [Not Recovered/Not Resolved]
